FAERS Safety Report 7228816-7 (Version None)
Quarter: 2011Q1

REPORT INFORMATION
  Report Type: 
  Country: None (occurrence: None)
  Receive Date: 20110117
  Receipt Date: 20110104
  Transmission Date: 20110831
  Serious: Yes (Hospitalization)
  Sender: FDA-Public Use
  Company Number: NL-TEVA-262447ISR

PATIENT
  Age: 75 Year
  Sex: Male
  Weight: 60 kg

DRUGS (8)
  1. INFLUENZA VIRUS VACCINE POLYVALENT [Suspect]
     Dates: start: 20101109, end: 20101109
  2. METOPROLOL [Suspect]
     Indication: HYPERTENSION
  3. ASCAL [Concomitant]
  4. INFLUENZA VIRUS VACCINE POLYVALENT [Suspect]
     Dates: start: 20101109, end: 20101109
  5. FLOXACILLIN SODIUM [Suspect]
     Dates: start: 20100101
  6. OMEPRAZOLE [Concomitant]
  7. FLUTICASONE PROPIONATE [Concomitant]
  8. AMLODIPINE MALEATE [Concomitant]

REACTIONS (1)
  - PSORIASIS [None]
